FAERS Safety Report 8431749-1 (Version None)
Quarter: 2012Q2

REPORT INFORMATION
  Report Type: 
  Country: None (occurrence: None)
  Receive Date: 20120607
  Receipt Date: 20120607
  Transmission Date: 20120825
  Serious: No
  Sender: FDA-Public Use
  Company Number: None

PATIENT
  Age: 54 Year
  Sex: Male
  Weight: 109.5 kg

DRUGS (2)
  1. TRAMADOL HCL [Suspect]
     Indication: CONVULSION
     Dosage: 100 MG TID PO
     Route: 048
     Dates: start: 20101217, end: 20110111
  2. SERTRALINE HYDROCHLORIDE [Suspect]
     Dosage: 100 MG AM PO
     Route: 048
     Dates: start: 20101216, end: 20110525

REACTIONS (1)
  - CONVULSION [None]
